FAERS Safety Report 9237948 (Version 1)
Quarter: 2013Q1

REPORT INFORMATION
  Report Type: Spontaneous
  Country: US (occurrence: None)
  Receive Date: 20121107
  Receipt Date: 20121107
  Transmission Date: 20140127
  Serious: No
  Sender: FDA-Public Use
  Company Number: 2012HGS-003737

PATIENT
  Age: 42 Year
  Sex: Female
  Weight: 58.97 kg

DRUGS (16)
  1. BENLYSTA [Suspect]
     Indication: SYSTEMIC LUPUS ERYTHEMATOSUS
     Dosage: 640 MG, 1 IN 28 D, INTRAVENOUS DRIP
     Route: 041
     Dates: start: 20120605
  2. PREDNISONE [Concomitant]
  3. PLAQUENIL [Concomitant]
  4. SYNTHROID [Concomitant]
  5. SEROQUEL [Concomitant]
  6. CYMBALTA [Concomitant]
  7. BUSPIRONE [Concomitant]
  8. DHEA [Concomitant]
  9. MAGNESIUM AND CALCIUM [Concomitant]
  10. MULTIVITAMIN [Concomitant]
  11. VITAMIN B6 COMPLEX [Concomitant]
  12. VITAMIN D [Concomitant]
  13. FISH OIL [Concomitant]
  14. ALLEGRA [Concomitant]
  15. ZYRTEC [Concomitant]
  16. MACROBID [Concomitant]

REACTIONS (1)
  - Weight increased [None]
